FAERS Safety Report 23852662 (Version 1)
Quarter: 2024Q2

REPORT INFORMATION
  Report Type: Spontaneous
  Country: SE (occurrence: SE)
  Receive Date: 20240514
  Receipt Date: 20240514
  Transmission Date: 20240715
  Serious: Yes (Hospitalization, Other)
  Sender: FDA-Public Use
  Company Number: None

PATIENT
  Age: 33 Year
  Sex: Female

DRUGS (3)
  1. CYCLOPHOSPHAMIDE [Suspect]
     Active Substance: CYCLOPHOSPHAMIDE
     Indication: Central nervous system vasculitis
     Dosage: 1100 MG, 2 WEEKS, 1,100 MG DOSE: THIRD DOSE RECEIVED DOSE 1 2024-04-01 AND DOSE 2 2024-4-15 AND DOSE
     Route: 042
     Dates: start: 20240401
  2. MESNA [Suspect]
     Active Substance: MESNA
     Dosage: 200 MG, 1 DAY, INJECTION 200 MG AT THE START OF INFUSION
     Route: 065
     Dates: start: 20240429
  3. MESNA [Suspect]
     Active Substance: MESNA
     Dosage: 800 MG, 1 DAY, TABLET 400 MG AFTER 2 AND 6 HOURS AFTER INFUSION, DOSAGE FORM: TABLET
     Route: 065
     Dates: start: 20240429

REACTIONS (1)
  - Cystitis haemorrhagic [Not Recovered/Not Resolved]

NARRATIVE: CASE EVENT DATE: 20240429
